FAERS Safety Report 20071097 (Version 6)
Quarter: 2022Q4

REPORT INFORMATION
  Report Type: Report from Study
  Country: CA (occurrence: CA)
  Receive Date: 20211115
  Receipt Date: 20221107
  Transmission Date: 20230113
  Serious: Yes (Other)
  Sender: FDA-Public Use
  Company Number: CA-BAUSCH-BL-2021-034136

PATIENT
  Age: 75 Year
  Sex: Female
  Weight: 79.819 kg

DRUGS (14)
  1. CONTRAVE [Suspect]
     Active Substance: BUPROPION HYDROCHLORIDE\NALTREXONE HYDROCHLORIDE
     Indication: Weight control
     Dosage: 90/8MG FIRST ATTEMPT
     Route: 048
     Dates: start: 2021
  2. CONTRAVE [Suspect]
     Active Substance: BUPROPION HYDROCHLORIDE\NALTREXONE HYDROCHLORIDE
     Dosage: 90/8MG; SECOND ATTEMPT-ONE PILL IN THE MORNING AND ONE PILL IN THE EVENING
     Route: 048
     Dates: start: 20211003, end: 202110
  3. CONTRAVE [Suspect]
     Active Substance: BUPROPION HYDROCHLORIDE\NALTREXONE HYDROCHLORIDE
     Dosage: 90MG/8MG, 2 TABS BID (PT TAKING 4 TABS/DAY) (2ND ATTEMPT)
     Route: 048
     Dates: start: 20211017, end: 20220703
  4. CONTRAVE [Suspect]
     Active Substance: BUPROPION HYDROCHLORIDE\NALTREXONE HYDROCHLORIDE
     Dosage: 90MG/8MG, (1 TAB AM, 2 TABS PM) THIRD ATTEMPT
     Route: 048
     Dates: start: 20220706, end: 2022
  5. CONTRAVE [Suspect]
     Active Substance: BUPROPION HYDROCHLORIDE\NALTREXONE HYDROCHLORIDE
     Dosage: 90/8 MG, PATIENT WAS IN FOURTH MONTH TAKING 4 TABS WHEN SHE STOPPED CONTRAVE 05/OCT/2022
     Route: 048
     Dates: start: 2022, end: 20221005
  6. CONTRAVE [Suspect]
     Active Substance: BUPROPION HYDROCHLORIDE\NALTREXONE HYDROCHLORIDE
     Dosage: 90/8 MG, PATIENT RESTARTED CONTRAVE 5 DAYS POST OP (FROM 07/OCT/2022), 1 TAB DAILY FOR FOUR DAYS
     Route: 048
     Dates: start: 20221012, end: 20221015
  7. CONTRAVE [Suspect]
     Active Substance: BUPROPION HYDROCHLORIDE\NALTREXONE HYDROCHLORIDE
     Dosage: 90/8 MG, 1 TAB BID (2 TABS/DAY FOR A WEEK )
     Route: 048
     Dates: start: 20221016, end: 20221022
  8. CONTRAVE [Suspect]
     Active Substance: BUPROPION HYDROCHLORIDE\NALTREXONE HYDROCHLORIDE
     Dosage: 90/8 MG, 2 TABS AM, 1 TAB PM (3 TABS/DAY FOR FOUR DAYS)
     Route: 048
     Dates: start: 20221023, end: 20221026
  9. CONTRAVE [Suspect]
     Active Substance: BUPROPION HYDROCHLORIDE\NALTREXONE HYDROCHLORIDE
     Dosage: 90/8 MG, 2 TABS BID (2 TAB AM, 2 TABS PM)
     Route: 048
     Dates: start: 20221027
  10. ASPIRIN [Concomitant]
     Active Substance: ASPIRIN
     Indication: Cardiovascular event prophylaxis
     Dosage: 81 MG, 1 IN 24 HR
     Route: 048
  11. TYLENOL [Concomitant]
     Active Substance: ACETAMINOPHEN
     Indication: Routine health maintenance
     Dosage: 1 AS NEEDED (500 MG, 1 IN 1 AS REQUIRED)
     Route: 048
  12. TRAZODONE [Concomitant]
     Active Substance: TRAZODONE HYDROCHLORIDE
     Indication: Poor quality sleep
     Dosage: AS NEEDED, PRN (25 MG, 1 IN  1 AS REQUIRED)
     Route: 048
  13. FUROSEMIDE [Concomitant]
     Active Substance: FUROSEMIDE
     Indication: Diuretic therapy
     Dosage: 40 MG, ONE IN MORNING (STARTED 6 YEARS AGO).
     Route: 048
     Dates: start: 2015
  14. FUROSEMIDE [Concomitant]
     Active Substance: FUROSEMIDE
     Indication: Cardiovascular event prophylaxis

REACTIONS (10)
  - Arthritis infective [Not Recovered/Not Resolved]
  - Ligament sprain [Recovering/Resolving]
  - Weight increased [Not Recovered/Not Resolved]
  - Hypophagia [Unknown]
  - Thermal burn [Unknown]
  - Nausea [Recovered/Resolved]
  - Vomiting [Not Recovered/Not Resolved]
  - Intentional product use issue [Unknown]
  - Drug titration error [Unknown]
  - Product dose omission in error [Unknown]

NARRATIVE: CASE EVENT DATE: 20210801
